FAERS Safety Report 9421463 (Version 1)
Quarter: 2013Q3

REPORT INFORMATION
  Report Type: Spontaneous
  Country: US (occurrence: US)
  Receive Date: 20130726
  Receipt Date: 20130726
  Transmission Date: 20140515
  Serious: Yes (Other)
  Sender: FDA-Public Use
  Company Number: US-AMGEN-USASP2013051943

PATIENT
  Age: 51 Year
  Sex: Female

DRUGS (2)
  1. ENBREL [Suspect]
     Indication: RHEUMATOID ARTHRITIS
     Dosage: 50 MG, EVERY 10 DAYS DUE TO COST AND LOST INSURANCE
     Route: 058
     Dates: start: 20030101
  2. METHOTREXATE [Concomitant]
     Indication: PAIN
     Dosage: 2.5 MG TABLETS ONCE WEEKLY

REACTIONS (4)
  - Ankle fracture [Recovered/Resolved]
  - Arthralgia [Not Recovered/Not Resolved]
  - Fall [Not Recovered/Not Resolved]
  - Gait disturbance [Not Recovered/Not Resolved]
